FAERS Safety Report 7831595-3 (Version None)
Quarter: 2011Q4

REPORT INFORMATION
  Report Type: 
  Country: None (occurrence: None)
  Receive Date: 20111021
  Receipt Date: 20111011
  Transmission Date: 20120403
  Serious: Yes (Death)
  Sender: FDA-Public Use
  Company Number: US-GILEAD-2011-0042760

PATIENT

DRUGS (4)
  1. NEVIRAPINE [Concomitant]
     Route: 064
     Dates: start: 20110417, end: 20110417
  2. EMTRICITABINE/TENOFOVIR DISOPROXIL FUMARATE [Suspect]
     Route: 064
     Dates: end: 20101028
  3. COTRIM [Concomitant]
     Route: 064
  4. ZIDOVUDINE [Concomitant]
     Route: 064
     Dates: start: 20110217

REACTIONS (1)
  - PREMATURE BABY [None]
